FAERS Safety Report 9707984 (Version 2)
Quarter: 2013Q4

REPORT INFORMATION
  Report Type: Spontaneous
  Country: US (occurrence: US)
  Receive Date: 20131125
  Receipt Date: 20131212
  Transmission Date: 20140711
  Serious: No
  Sender: FDA-Public Use
  Company Number: US-BAXTER-2013BAX046203

PATIENT
  Sex: Male

DRUGS (3)
  1. DIANEAL LOW CALCIUM [Suspect]
     Indication: PERITONEAL DIALYSIS
     Route: 033
     Dates: start: 20130513
  2. EXTRANEAL [Suspect]
     Indication: PERITONEAL DIALYSIS
     Route: 033
     Dates: start: 20130513
  3. COLACE [Concomitant]
     Indication: CONSTIPATION
     Route: 048

REACTIONS (4)
  - Local swelling [Recovering/Resolving]
  - Swelling [Recovering/Resolving]
  - Blood phosphorus increased [Recovering/Resolving]
  - Abdominal distension [Recovering/Resolving]
